FAERS Safety Report 12100141 (Version 1)
Quarter: 2016Q1

REPORT INFORMATION
  Report Type: Spontaneous
  Country: DE (occurrence: DE)
  Receive Date: 20160222
  Receipt Date: 20160222
  Transmission Date: 20160526
  Serious: Yes (Hospitalization)
  Sender: FDA-Public Use
  Company Number: PHHY2016DE020901

PATIENT
  Age: 29 Year
  Sex: Female

DRUGS (5)
  1. BUPROPION. [Suspect]
     Active Substance: BUPROPION
     Dosage: 2400 MG, QD
     Route: 042
  2. PREGABALIN. [Concomitant]
     Active Substance: PREGABALIN
     Indication: PRODUCT USED FOR UNKNOWN INDICATION
     Dosage: 300 MG, QD
     Route: 065
  3. BUPROPION. [Suspect]
     Active Substance: BUPROPION
     Indication: DEPRESSION
     Dosage: 300 MG, UNK
     Route: 048
  4. RIVAROXABAN [Concomitant]
     Active Substance: RIVAROXABAN
     Indication: THROMBOSIS
     Route: 065
  5. BUPROPION. [Suspect]
     Active Substance: BUPROPION
     Dosage: 450 MG, QD
     Route: 048

REACTIONS (10)
  - Sleep disorder [Unknown]
  - Overdose [Unknown]
  - Affective disorder [Recovered/Resolved]
  - Drug abuse [Unknown]
  - Thinking abnormal [Unknown]
  - Drug administration error [Unknown]
  - Restless legs syndrome [Unknown]
  - Psychomotor hyperactivity [Unknown]
  - Withdrawal syndrome [Unknown]
  - Seizure [Unknown]
